FAERS Safety Report 9893631 (Version 1)
Quarter: 2014Q1

REPORT INFORMATION
  Report Type: Spontaneous
  Country: ES (occurrence: ES)
  Receive Date: 20140213
  Receipt Date: 20140213
  Transmission Date: 20141002
  Serious: Yes (Death, Hospitalization, Other)
  Sender: FDA-Public Use
  Company Number: PHHY2014ES015736

PATIENT
  Age: 56 Year
  Sex: Female

DRUGS (5)
  1. EVEROLIMUS [Suspect]
     Indication: NEUROENDOCRINE TUMOUR
     Dosage: 10 MG, DAILY
  2. EVEROLIMUS [Suspect]
     Dosage: 5 MG, DAILY
  3. EVEROLIMUS [Suspect]
     Dosage: 10 MG, DAILY
  4. EVEROLIMUS [Suspect]
     Dosage: 5 MG, DAILY
     Dates: end: 201107
  5. OCTREOTIDE ACETATE SANDOZ [Suspect]
     Indication: NEUROENDOCRINE TUMOUR
     Dosage: 30 MG, EVERY 4 WEEKS
     Route: 030

REACTIONS (8)
  - Urosepsis [Fatal]
  - Hypoglycaemia [Fatal]
  - Loss of consciousness [Fatal]
  - Hyperglycaemia [Unknown]
  - Malignant neoplasm progression [Unknown]
  - Pneumonitis [Unknown]
  - Lung infiltration [Unknown]
  - Neutropenia [Unknown]
